FAERS Safety Report 24883041 (Version 2)
Quarter: 2025Q1

REPORT INFORMATION
  Report Type: Spontaneous
  Country: CA (occurrence: CA)
  Receive Date: 20250124
  Receipt Date: 20250210
  Transmission Date: 20250409
  Serious: Yes (Death, Life-Threatening, Hospitalization, Disabling, Congenital Anomaly, Other)
  Sender: Haleon PLC
  Company Number: CA-HALEON-2224627

PATIENT
  Age: 40 Year
  Sex: Female
  Weight: 96 kg

DRUGS (62)
  1. DICLOFENAC [Suspect]
     Active Substance: DICLOFENAC
     Indication: Product used for unknown indication
     Route: 065
  2. DICLOFENAC SODIUM [Suspect]
     Active Substance: DICLOFENAC SODIUM
     Indication: Product used for unknown indication
     Route: 065
  3. DICLOFENAC SODIUM [Suspect]
     Active Substance: DICLOFENAC SODIUM
     Route: 065
  4. DICLOFENAC SODIUM [Suspect]
     Active Substance: DICLOFENAC SODIUM
     Route: 065
  5. VITAMIN D3 [Suspect]
     Active Substance: CHOLECALCIFEROL
     Indication: Product used for unknown indication
     Route: 065
  6. ADALIMUMAB [Suspect]
     Active Substance: ADALIMUMAB
     Indication: Rheumatoid arthritis
     Route: 058
  7. AIMOVIG [Suspect]
     Active Substance: ERENUMAB-AOOE
     Indication: Migraine
     Route: 065
  8. METHOTREXATE [Suspect]
     Active Substance: METHOTREXATE
     Indication: Rheumatoid arthritis
     Route: 016
  9. METHOTREXATE [Suspect]
     Active Substance: METHOTREXATE
     Route: 065
  10. METHOTREXATE [Suspect]
     Active Substance: METHOTREXATE
     Route: 013
  11. METHOTREXATE [Suspect]
     Active Substance: METHOTREXATE
     Route: 048
  12. METHOTREXATE [Suspect]
     Active Substance: METHOTREXATE
     Route: 048
  13. METHOTREXATE [Suspect]
     Active Substance: METHOTREXATE
     Route: 058
  14. METHOTREXATE [Suspect]
     Active Substance: METHOTREXATE
     Route: 013
  15. METHOTREXATE [Suspect]
     Active Substance: METHOTREXATE
     Route: 065
  16. METHOTREXATE [Suspect]
     Active Substance: METHOTREXATE
     Route: 048
  17. METHOTREXATE [Suspect]
     Active Substance: METHOTREXATE
     Route: 048
  18. METHOTREXATE [Suspect]
     Active Substance: METHOTREXATE
     Route: 048
  19. METHOTREXATE [Suspect]
     Active Substance: METHOTREXATE
     Route: 048
  20. METHOTREXATE [Suspect]
     Active Substance: METHOTREXATE
     Route: 048
  21. METHOTREXATE [Suspect]
     Active Substance: METHOTREXATE
     Route: 048
  22. METHOTREXATE [Suspect]
     Active Substance: METHOTREXATE
     Route: 013
  23. METHOTREXATE [Suspect]
     Active Substance: METHOTREXATE
     Route: 048
  24. METHOTREXATE [Suspect]
     Active Substance: METHOTREXATE
     Route: 048
  25. METHOTREXATE [Suspect]
     Active Substance: METHOTREXATE
     Route: 048
  26. METHOTREXATE [Suspect]
     Active Substance: METHOTREXATE
     Route: 013
  27. METHOTREXATE [Suspect]
     Active Substance: METHOTREXATE
     Route: 048
  28. METHOTREXATE [Suspect]
     Active Substance: METHOTREXATE
     Route: 048
  29. METHOTREXATE [Suspect]
     Active Substance: METHOTREXATE
  30. OXYCODONE HYDROCHLORIDE [Suspect]
     Active Substance: OXYCODONE HYDROCHLORIDE
     Indication: Product used for unknown indication
     Route: 065
  31. PHENYLEPHRINE HYDROCHLORIDE [Suspect]
     Active Substance: PHENYLEPHRINE HYDROCHLORIDE
     Indication: Rheumatoid arthritis
     Route: 065
  32. RITUXIMAB [Suspect]
     Active Substance: RITUXIMAB
     Indication: Rheumatoid arthritis
     Route: 065
  33. RITUXIMAB [Suspect]
     Active Substance: RITUXIMAB
     Route: 042
  34. RITUXIMAB [Suspect]
     Active Substance: RITUXIMAB
     Route: 042
  35. RITUXIMAB [Suspect]
     Active Substance: RITUXIMAB
     Route: 016
  36. RITUXIMAB [Suspect]
     Active Substance: RITUXIMAB
     Route: 058
  37. RITUXIMAB [Suspect]
     Active Substance: RITUXIMAB
     Route: 042
  38. RITUXIMAB [Suspect]
     Active Substance: RITUXIMAB
     Route: 016
  39. RITUXIMAB [Suspect]
     Active Substance: RITUXIMAB
     Route: 016
  40. RITUXIMAB [Suspect]
     Active Substance: RITUXIMAB
     Route: 065
  41. RITUXIMAB [Suspect]
     Active Substance: RITUXIMAB
     Route: 065
  42. RITUXIMAB [Suspect]
     Active Substance: RITUXIMAB
     Route: 043
  43. RITUXIMAB [Suspect]
     Active Substance: RITUXIMAB
     Route: 043
  44. RITUXIMAB [Suspect]
     Active Substance: RITUXIMAB
     Route: 065
  45. RITUXIMAB [Suspect]
     Active Substance: RITUXIMAB
     Route: 042
  46. RITUXIMAB [Suspect]
     Active Substance: RITUXIMAB
     Route: 065
  47. RITUXIMAB [Suspect]
     Active Substance: RITUXIMAB
     Route: 065
  48. RITUXIMAB [Suspect]
     Active Substance: RITUXIMAB
     Route: 042
  49. TOPIRAMATE [Suspect]
     Active Substance: TOPIRAMATE
     Indication: Migraine
     Route: 065
  50. TOPIRAMATE [Suspect]
     Active Substance: TOPIRAMATE
     Route: 065
  51. TOPIRAMATE [Suspect]
     Active Substance: TOPIRAMATE
     Route: 065
  52. CANDESARTAN CILEXETIL [Suspect]
     Active Substance: CANDESARTAN CILEXETIL
     Indication: Migraine
     Route: 048
  53. COSENTYX [Suspect]
     Active Substance: SECUKINUMAB
     Indication: Rheumatoid arthritis
     Route: 065
  54. COSENTYX [Suspect]
     Active Substance: SECUKINUMAB
     Indication: Psoriatic arthropathy
     Route: 065
  55. ERELZI [Suspect]
     Active Substance: ETANERCEPT-SZZS
     Indication: Rheumatoid arthritis
     Route: 058
  56. ERELZI [Suspect]
     Active Substance: ETANERCEPT-SZZS
     Route: 065
  57. LEFLUNOMIDE [Suspect]
     Active Substance: LEFLUNOMIDE
     Indication: Rheumatoid arthritis
     Route: 048
  58. LEFLUNOMIDE [Suspect]
     Active Substance: LEFLUNOMIDE
     Route: 048
  59. LEFLUNOMIDE [Suspect]
     Active Substance: LEFLUNOMIDE
     Route: 065
  60. LEFLUNOMIDE [Suspect]
     Active Substance: LEFLUNOMIDE
     Route: 065
  61. LEFLUNOMIDE [Suspect]
     Active Substance: LEFLUNOMIDE
     Route: 065
  62. COSENTYX [Concomitant]
     Active Substance: SECUKINUMAB
     Indication: Product used for unknown indication
     Route: 065

REACTIONS (34)
  - Coeliac disease [Fatal]
  - Back injury [Fatal]
  - Insomnia [Fatal]
  - Grip strength decreased [Fatal]
  - Finger deformity [Fatal]
  - Gastrooesophageal reflux disease [Fatal]
  - Injury [Fatal]
  - Hypoaesthesia [Fatal]
  - Pain in extremity [Fatal]
  - Adverse reaction [Fatal]
  - Product label confusion [Fatal]
  - Folliculitis [Fatal]
  - Fall [Fatal]
  - Off label use [Fatal]
  - Liver function test increased [Fatal]
  - Dyspepsia [Fatal]
  - Intentional product use issue [Fatal]
  - Wound infection [Fatal]
  - Hepatitis [Fatal]
  - Musculoskeletal stiffness [Fatal]
  - Neck pain [Fatal]
  - Bursitis [Fatal]
  - Abdominal distension [Fatal]
  - Mobility decreased [Fatal]
  - Wheezing [Fatal]
  - Nail disorder [Fatal]
  - Headache [Fatal]
  - Muscular weakness [Fatal]
  - Weight increased [Fatal]
  - Condition aggravated [Fatal]
  - Gait inability [Fatal]
  - Gastrointestinal disorder [Fatal]
  - Malaise [Fatal]
  - Pneumonia [Fatal]
